FAERS Safety Report 8432478-0 (Version None)
Quarter: 2012Q2

REPORT INFORMATION
  Report Type: 
  Country: None (occurrence: None)
  Receive Date: 20120606
  Receipt Date: 20120525
  Transmission Date: 20120825
  Serious: Yes (Hospitalization, Other)
  Sender: FDA-Public Use
  Company Number: AUR-APL-2012-02207

PATIENT
  Age: 20 Year
  Sex: Female

DRUGS (5)
  1. LAMOTRIGINE [Suspect]
     Indication: PRODUCT USED FOR UNKNOWN INDICATION
     Route: 048
     Dates: start: 20110704, end: 20110704
  2. OLANZAPINE [Suspect]
     Indication: PRODUCT USED FOR UNKNOWN INDICATION
     Route: 048
     Dates: start: 20110704, end: 20110704
  3. NEURONTIN [Suspect]
     Indication: PRODUCT USED FOR UNKNOWN INDICATION
     Route: 048
     Dates: start: 20110704, end: 20110704
  4. DIAZEPAM [Suspect]
     Indication: SUICIDE ATTEMPT
     Route: 048
     Dates: start: 20110704, end: 20110704
  5. VENLAFAXINE HCL [Suspect]
     Indication: PRODUCT USED FOR UNKNOWN INDICATION
     Route: 048
     Dates: start: 20110704, end: 20110704

REACTIONS (5)
  - SUICIDE ATTEMPT [None]
  - COMA [None]
  - DRUG INEFFECTIVE [None]
  - MYDRIASIS [None]
  - TOXICOLOGIC TEST ABNORMAL [None]
